FAERS Safety Report 11003129 (Version 2)
Quarter: 2016Q2

REPORT INFORMATION
  Report Type: Report from Study
  Country: NO (occurrence: NO)
  Receive Date: 20150409
  Receipt Date: 20160504
  Transmission Date: 20160815
  Serious: Yes (Other)
  Sender: FDA-Public Use
  Company Number: NO-ROCHE-1560773

PATIENT

DRUGS (3)
  1. EVEROLIMUS [Suspect]
     Active Substance: EVEROLIMUS
     Indication: PROPHYLAXIS AGAINST TRANSPLANT REJECTION
     Dosage: DOSE OF 0.75MGTWICE DAILY, ADJUSTED TO TARGET A TROUGH LEVEL OF 3-6 MG/ML DURING THE FIRST 7 WEEKS P
     Route: 065
  2. MYCOPHENOLATE MOFETIL. [Suspect]
     Active Substance: MYCOPHENOLATE MOFETIL
     Indication: PROPHYLAXIS AGAINST TRANSPLANT REJECTION
     Dosage: THE TARGET DOSE OF MMF WAS 1500-2000 MG/DAY TO WEEKS 7-11, WITH A TARGET DOSE OF 1000 MG/DAY (MINIMU
     Route: 065
  3. CYCLOSPORINE. [Suspect]
     Active Substance: CYCLOSPORINE
     Indication: PROPHYLAXIS AGAINST TRANSPLANT REJECTION
     Dosage: TARGET CYCLOSPORINE TROUGH LEVEL WAS 150-350 NG/ML DURING MONTHS 1 AND 2, 100-250 NG/ML DURING MONTH
     Route: 065

REACTIONS (26)
  - Infection [Unknown]
  - Connective tissue disorder [Unknown]
  - Metabolic disorder [Unknown]
  - Pneumonia [Unknown]
  - Pneumonitis [Unknown]
  - Lymphatic disorder [Unknown]
  - Urinary tract infection [Unknown]
  - Pyrexia [Unknown]
  - Pneumothorax [Unknown]
  - Diabetes mellitus [Unknown]
  - Basal cell carcinoma [Unknown]
  - Diarrhoea [Unknown]
  - Arrhythmia [Unknown]
  - Pleural effusion [Unknown]
  - Hyperuricaemia [Unknown]
  - Cytomegalovirus infection [Unknown]
  - Nervous system disorder [Unknown]
  - Neoplasm [Unknown]
  - Blood disorder [Unknown]
  - Cardiac disorder [Unknown]
  - Renal failure [Unknown]
  - Angiopathy [Unknown]
  - Upper respiratory tract infection [Unknown]
  - Nasopharyngitis [Unknown]
  - Mental disorder [Unknown]
  - Musculoskeletal disorder [Unknown]
